FAERS Safety Report 6145188-X (Version None)
Quarter: 2009Q2

REPORT INFORMATION
  Report Type: 
  Country: None (occurrence: None)
  Receive Date: 20090406
  Receipt Date: 20090330
  Transmission Date: 20091009
  Serious: Yes (Other)
  Sender: FDA-Public Use
  Company Number: US-JNJFOC-20080404783

PATIENT
  Sex: Female
  Weight: 58.97 kg

DRUGS (4)
  1. FENTANYL TRANSDERMAL SYSTEM [Suspect]
     Indication: PANCREATITIS CHRONIC
     Dosage: 1X 100UG/HR PATCH PLUS 1X 75UG/HR PATCH
     Route: 062
  2. PERCOCET [Suspect]
     Indication: HEADACHE
  3. VICODIN [Concomitant]
  4. IMITREX [Concomitant]

REACTIONS (6)
  - APPLICATION SITE ERYTHEMA [None]
  - APPLICATION SITE IRRITATION [None]
  - APPLICATION SITE PRURITUS [None]
  - OVERDOSE [None]
  - PRODUCT QUALITY ISSUE [None]
  - THERMAL BURN [None]
